FAERS Safety Report 16868095 (Version 1)
Quarter: 2019Q3

REPORT INFORMATION
  Report Type: Spontaneous
  Country: US (occurrence: US)
  Receive Date: 20190930
  Receipt Date: 20190930
  Transmission Date: 20191005
  Serious: Yes (Hospitalization, Disabling)
  Sender: FDA-Public Use
  Company Number: US-PFIZER INC-2019416078

PATIENT
  Age: 90 Year
  Sex: Female
  Weight: 61.69 kg

DRUGS (3)
  1. IBRANCE [Suspect]
     Active Substance: PALBOCICLIB
     Indication: OESTROGEN RECEPTOR POSITIVE BREAST CANCER
     Dosage: 125 MG, CYCLIC, (FOR 21 DAYS ON AND 7 DAYS OFF ON A 28 DAY CYCLE)
     Route: 048
     Dates: start: 20190624, end: 20190820
  2. LETROZOLE. [Concomitant]
     Active Substance: LETROZOLE
     Dosage: UNK
     Dates: start: 20190502
  3. IBRANCE [Suspect]
     Active Substance: PALBOCICLIB
     Dosage: 100 MG, UNK
     Dates: start: 20190820, end: 20190924

REACTIONS (3)
  - White blood cell count decreased [Unknown]
  - Cellulitis [Recovered/Resolved]
  - Neoplasm progression [Unknown]
